FAERS Safety Report 8559518-2 (Version None)
Quarter: 2012Q3

REPORT INFORMATION
  Report Type: 
  Country: None (occurrence: None)
  Receive Date: 20120802
  Receipt Date: 20120725
  Transmission Date: 20120928
  Serious: Yes (Hospitalization)
  Sender: FDA-Public Use
  Company Number: US-BAYER-2012-076188

PATIENT
  Age: 34 Year
  Sex: Female
  Weight: 109 kg

DRUGS (5)
  1. YASMIN [Suspect]
     Indication: CONTRACEPTION
     Dosage: UNK
     Dates: start: 20050117, end: 20080612
  2. YASMIN [Suspect]
     Indication: POLYCYSTIC OVARIES
  3. DROSPIRENONE AND ETHINYL ESTRADIOL [Suspect]
     Dosage: UNK
     Dates: start: 20050117, end: 20080612
  4. YASMIN [Suspect]
     Indication: ACNE
  5. ZOLOFT [Concomitant]
     Dosage: 50 MG, QD
     Route: 048

REACTIONS (5)
  - DYSPNOEA [None]
  - CHEST DISCOMFORT [None]
  - ATELECTASIS [None]
  - DEEP VEIN THROMBOSIS [None]
  - PULMONARY EMBOLISM [None]
